FAERS Safety Report 22240542 (Version 1)
Quarter: 2023Q2

REPORT INFORMATION
  Report Type: Spontaneous
  Country: US (occurrence: None)
  Receive Date: 20230421
  Receipt Date: 20230421
  Transmission Date: 20230722
  Serious: Yes (Disabling, Other)
  Sender: FDA-Public Use
  Company Number: None

PATIENT
  Age: 41 Year
  Sex: Female
  Weight: 54 kg

DRUGS (1)
  1. AMPHETAMINE ASPARTATE\DEXTROAMPHETAMINE SACCHARATE [Suspect]
     Active Substance: AMPHETAMINE ASPARTATE\DEXTROAMPHETAMINE SACCHARATE
     Indication: Attention deficit hyperactivity disorder
     Dosage: OTHER QUANTITY : 60 CAPSULE(S);?FREQUENCY : TWICE A DAY;?
     Route: 048
     Dates: start: 20230313, end: 20230413

REACTIONS (3)
  - Drug ineffective [None]
  - Lethargy [None]
  - Adverse drug reaction [None]

NARRATIVE: CASE EVENT DATE: 20230313
